FAERS Safety Report 9462072 (Version 1)
Quarter: 2013Q3

REPORT INFORMATION
  Report Type: Spontaneous
  Country: US (occurrence: None)
  Receive Date: 20130815
  Receipt Date: 20130815
  Transmission Date: 20140515
  Serious: Yes (Hospitalization)
  Sender: FDA-Public Use
  Company Number: None

PATIENT
  Age: 80 Year
  Sex: Male
  Weight: 104.5 kg

DRUGS (7)
  1. XARELTO [Suspect]
     Indication: ATRIAL FIBRILLATION
     Route: 048
  2. XARELTO [Suspect]
     Route: 048
  3. XANAX [Concomitant]
  4. CHOLECALCIFEROL [Concomitant]
  5. MVI [Concomitant]
  6. VIT B [Concomitant]
  7. ZOCOR [Concomitant]

REACTIONS (2)
  - Diverticulum intestinal haemorrhagic [None]
  - Large intestine polyp [None]
